FAERS Safety Report 21661295 (Version 1)
Quarter: 2022Q4

REPORT INFORMATION
  Report Type: Spontaneous
  Country: US (occurrence: US)
  Receive Date: 20221130
  Receipt Date: 20221130
  Transmission Date: 20230113
  Serious: Yes (Hospitalization, Other)
  Sender: FDA-Public Use
  Company Number: None

PATIENT
  Age: 49 Year
  Sex: Male

DRUGS (3)
  1. MYCOPHENOLATE MOFETIL [Suspect]
     Active Substance: MYCOPHENOLATE MOFETIL
     Indication: Immunosuppressant drug therapy
     Dosage: UNK
     Route: 065
  2. TACROLIMUS [Suspect]
     Active Substance: TACROLIMUS
     Indication: Immunosuppressant drug therapy
     Dosage: UNK
     Route: 065
  3. Sulfamethoxazole 400 mg, Trimethoprim 80 mg [Concomitant]
     Indication: Infection prophylaxis
     Dosage: UNK, QD(EVERY 1 DAY)
     Route: 065

REACTIONS (3)
  - Cat scratch disease [Recovered/Resolved]
  - Brain abscess [Recovered/Resolved]
  - Meningitis bacterial [Recovered/Resolved]
